FAERS Safety Report 4730404-9 (Version None)
Quarter: 2005Q3

REPORT INFORMATION
  Report Type: 
  Country: None (occurrence: None)
  Receive Date: 20050801
  Receipt Date: 20050627
  Transmission Date: 20060218
  Serious: Yes (Other)
  Sender: FDA-Public Use
  Company Number: US-MERCK-0506USA03891

PATIENT
  Age: 49 Year
  Sex: Male
  Weight: 85 kg

DRUGS (10)
  1. VYTORIN [Suspect]
     Indication: BLOOD CHOLESTEROL INCREASED
     Route: 048
     Dates: start: 20050101, end: 20050301
  2. VYTORIN [Suspect]
     Indication: LOW DENSITY LIPOPROTEIN DECREASED
     Route: 048
     Dates: start: 20050101, end: 20050301
  3. ASPIRIN [Concomitant]
     Indication: MYOCARDIAL INFARCTION
     Route: 048
     Dates: start: 20050101
  4. ALTACE [Concomitant]
     Indication: HYPERTENSION
     Route: 048
     Dates: start: 20050101
  5. PAXIL [Concomitant]
     Indication: DEPRESSION
     Route: 048
     Dates: start: 20050101
  6. GLUCOPHAGE [Concomitant]
     Indication: DIABETES MELLITUS
     Route: 048
     Dates: start: 20050101
  7. IMDUR [Concomitant]
     Indication: MYOCARDIAL INFARCTION
     Route: 048
     Dates: start: 20050101
  8. PLAVIX [Concomitant]
     Indication: MYOCARDIAL INFARCTION
     Route: 048
     Dates: start: 20050101
  9. TOPROL-XL [Concomitant]
     Indication: MYOCARDIAL INFARCTION
     Route: 048
     Dates: start: 20050101
  10. FOLGARD [Concomitant]
     Indication: BLOOD HOMOCYSTEINE INCREASED
     Route: 048
     Dates: start: 20050101

REACTIONS (2)
  - CORONARY ARTERY DISEASE [None]
  - DIARRHOEA [None]
